FAERS Safety Report 18061943 (Version 1)
Quarter: 2020Q3

REPORT INFORMATION
  Report Type: Report from Study
  Country: US (occurrence: US)
  Receive Date: 20200723
  Receipt Date: 20200723
  Transmission Date: 20201103
  Serious: Yes (Other)
  Sender: FDA-Public Use
  Company Number: US-BAYER-2020-134221

PATIENT

DRUGS (1)
  1. ALKA?SELTZER PLUS NIGHT COLD AND FLU FORMULA [Suspect]
     Active Substance: ACETAMINOPHEN\DEXTROMETHORPHAN HYDROBROMIDE\DOXYLAMINE SUCCINATE\PHENYLEPHRINE

REACTIONS (4)
  - Oropharyngeal pain [None]
  - Choking [None]
  - Foreign body in throat [None]
  - Wrong technique in product usage process [None]
